FAERS Safety Report 4271982-6 (Version None)
Quarter: 2004Q1

REPORT INFORMATION
  Report Type: 
  Country: None (occurrence: None)
  Receive Date: 20040115
  Receipt Date: 20040108
  Transmission Date: 20041129
  Serious: Yes (Other)
  Sender: FDA-Public Use
  Company Number: JP-BRISTOL-MYERS SQUIBB COMPANY-12473724

PATIENT
  Age: 72 Year
  Sex: Female

DRUGS (3)
  1. TAXOL [Suspect]
     Dosage: THERAPY DATES FROM 17-NOV TO 19-DEC-2003
     Route: 042
     Dates: start: 20031219, end: 20031219
  2. TS-1 [Concomitant]
     Route: 048
     Dates: start: 20031212, end: 20031225
  3. TS-1 [Concomitant]
     Route: 048
     Dates: start: 20031117, end: 20031130

REACTIONS (2)
  - ASTHENIA [None]
  - FACIAL PALSY [None]
